FAERS Safety Report 13210475 (Version 1)
Quarter: 2017Q1

REPORT INFORMATION
  Report Type: Spontaneous
  Country: US (occurrence: US)
  Receive Date: 20170209
  Receipt Date: 20170209
  Transmission Date: 20170428
  Serious: No
  Sender: FDA-Public Use
  Company Number: None

PATIENT
  Age: 11 Year
  Sex: Male

DRUGS (3)
  1. INTUNIV [Concomitant]
     Active Substance: GUANFACINE HYDROCHLORIDE
  2. GUANFACINE. [Suspect]
     Active Substance: GUANFACINE
     Indication: ATTENTION DEFICIT/HYPERACTIVITY DISORDER
     Dosage: 1 PILL
     Route: 048
     Dates: start: 20161228
  3. METHYLPHENIDATE HCL ER [Concomitant]

REACTIONS (4)
  - Drug ineffective [None]
  - Product substitution issue [None]
  - Attention deficit/hyperactivity disorder [None]
  - Condition aggravated [None]

NARRATIVE: CASE EVENT DATE: 201512
